FAERS Safety Report 20355276 (Version 1)
Quarter: 2022Q1

REPORT INFORMATION
  Report Type: Spontaneous
  Country: US (occurrence: US)
  Receive Date: 20220120
  Receipt Date: 20220120
  Transmission Date: 20220423
  Serious: No
  Sender: FDA-Public Use
  Company Number: ENDG21-00703

PATIENT
  Sex: Female

DRUGS (9)
  1. PERCOCET [Suspect]
     Active Substance: ACETAMINOPHEN\OXYCODONE HYDROCHLORIDE
     Indication: Back pain
     Dosage: 1 DF, EVERY 6 HOURS, PRN
     Route: 048
  2. PERCOCET [Suspect]
     Active Substance: ACETAMINOPHEN\OXYCODONE HYDROCHLORIDE
     Indication: Neck pain
  3. XTAMPZA ER [Suspect]
     Active Substance: OXYCODONE
     Indication: Back pain
     Dosage: 9 MG, EVERY 12 HOURS
     Route: 048
  4. XTAMPZA ER [Suspect]
     Active Substance: OXYCODONE
     Indication: Neck pain
  5. LYRICA [Suspect]
     Active Substance: PREGABALIN
     Indication: Lumbar radiculopathy
     Dosage: 300 MG, BID
     Route: 048
  6. LYRICA [Suspect]
     Active Substance: PREGABALIN
     Indication: Back pain
  7. LYRICA [Suspect]
     Active Substance: PREGABALIN
     Indication: Neck pain
  8. FLEXERIL [Suspect]
     Active Substance: CYCLOBENZAPRINE HYDROCHLORIDE
     Indication: Back pain
     Dosage: 10 MG, BID, AS NEEDED
     Route: 048
  9. FLEXERIL [Suspect]
     Active Substance: CYCLOBENZAPRINE HYDROCHLORIDE
     Indication: Neck pain

REACTIONS (1)
  - Therapeutic product effect incomplete [Unknown]
